FAERS Safety Report 12256702 (Version 1)
Quarter: 2016Q2

REPORT INFORMATION
  Report Type: Spontaneous
  Country: US (occurrence: None)
  Receive Date: 20160411
  Receipt Date: 20160411
  Transmission Date: 20160815
  Serious: No
  Sender: FDA-Public Use
  Company Number: None

PATIENT
  Age: 57 Year
  Sex: Female
  Weight: 72.58 kg

DRUGS (9)
  1. PROZAC [Concomitant]
     Active Substance: FLUOXETINE HYDROCHLORIDE
  2. FISH OIL [Concomitant]
     Active Substance: FISH OIL
  3. BAYER ASPIRIN [Concomitant]
     Active Substance: ASPIRIN
  4. LUTEIN [Concomitant]
     Active Substance: LUTEIN
  5. CALCIUM [Concomitant]
     Active Substance: CALCIUM
  6. MULTIVITAMIN [Concomitant]
     Active Substance: VITAMINS
  7. FOSAMAX [Concomitant]
     Active Substance: ALENDRONATE SODIUM
  8. ANASTROZOLE 1 MG TABLET, 1 MG ASTRAZENECA [Suspect]
     Active Substance: ANASTROZOLE
     Indication: BREAST CANCER
     Dosage: 1 TABLET(S) ONCE A DAY TAKEN BY MOUTH
     Route: 048
     Dates: start: 20160331, end: 20160402
  9. VITAMIN D3 [Concomitant]
     Active Substance: CHOLECALCIFEROL

REACTIONS (9)
  - Insomnia [None]
  - Headache [None]
  - Erythema [None]
  - Skin disorder [None]
  - Rash [None]
  - Chemical injury [None]
  - Skin exfoliation [None]
  - Urticaria [None]
  - Depression [None]

NARRATIVE: CASE EVENT DATE: 20160402
